FAERS Safety Report 22330613 (Version 16)
Quarter: 2023Q4

REPORT INFORMATION
  Report Type: Report from Study
  Country: IL (occurrence: IL)
  Receive Date: 20230517
  Receipt Date: 20231218
  Transmission Date: 20240109
  Serious: Yes (Hospitalization, Other)
  Sender: FDA-Public Use
  Company Number: IL-ABBVIE-4769551

PATIENT
  Sex: Male

DRUGS (3)
  1. CARBIDOPA\LEVODOPA [Suspect]
     Active Substance: CARBIDOPA\LEVODOPA
     Indication: Parkinson^s disease
     Dosage: MORNING DOSAGE(ML)  13.3, CONTINUOUS DOSAGE (ML/H)  2.8, EXTRA DOSAGE (ML)  1.5
     Route: 050
  2. CARBIDOPA\LEVODOPA [Suspect]
     Active Substance: CARBIDOPA\LEVODOPA
     Dosage: MORNING DOSAGE(ML)  13.3, CONTINUOUS DOSAGE (ML/H)  2.9, EXTRA DOSAGE (ML)  1.5,?DOSE INCREASED
     Route: 050
  3. CARBIDOPA\LEVODOPA [Suspect]
     Active Substance: CARBIDOPA\LEVODOPA
     Route: 050
     Dates: start: 20230221

REACTIONS (12)
  - Surgical failure [Unknown]
  - Fall [Recovered/Resolved]
  - Fracture [Unknown]
  - Orthopaedic procedure [Recovering/Resolving]
  - Pain in extremity [Recovering/Resolving]
  - Fall [Recovering/Resolving]
  - Fall [Unknown]
  - Orthopaedic procedure [Recovering/Resolving]
  - Limb operation [Recovering/Resolving]
  - Postoperative wound infection [Recovering/Resolving]
  - Fracture [Unknown]
  - Inflammation of wound [Recovering/Resolving]

NARRATIVE: CASE EVENT DATE: 20230101
